FAERS Safety Report 10253150 (Version 1)
Quarter: 2014Q2

REPORT INFORMATION
  Report Type: Spontaneous
  Country: AU (occurrence: AU)
  Receive Date: 20140623
  Receipt Date: 20140623
  Transmission Date: 20141212
  Serious: Yes (Other)
  Sender: FDA-Public Use
  Company Number: AU-GLAXOSMITHKLINE-B0993252A

PATIENT
  Age: 38 Year
  Sex: Male
  Weight: 105 kg

DRUGS (2)
  1. TAFINLAR [Suspect]
     Indication: MALIGNANT MELANOMA
     Dosage: 150MG TWICE PER DAY
     Route: 065
     Dates: start: 20140327
  2. MEKINIST [Suspect]
     Indication: MALIGNANT MELANOMA
     Dosage: 2MG PER DAY
     Route: 065
     Dates: start: 20140327

REACTIONS (1)
  - Erectile dysfunction [Not Recovered/Not Resolved]
